FAERS Safety Report 22528573 (Version 11)
Quarter: 2024Q4

REPORT INFORMATION
  Report Type: Spontaneous
  Country: CA (occurrence: CA)
  Receive Date: 20230607
  Receipt Date: 20241016
  Transmission Date: 20250114
  Serious: Yes (Hospitalization, Other)
  Sender: INTERCEPT PHARMACEUTICALS
  Company Number: CA-ADVANZ PHARMA-202302001477

PATIENT
  Age: 64 Year
  Sex: Male

DRUGS (3)
  1. OCALIVA [Suspect]
     Active Substance: OBETICHOLIC ACID
     Indication: Primary biliary cholangitis
     Dosage: 5 MG, QD (OCALIVA)
     Route: 048
     Dates: start: 20221217
  2. OCALIVA [Suspect]
     Active Substance: OBETICHOLIC ACID
     Dosage: 5 MG, QD (STARTED BACK)
     Route: 048
     Dates: start: 20230602
  3. URSODIOL [Concomitant]
     Active Substance: URSODIOL
     Dosage: 1000 MG
     Dates: start: 20210106

REACTIONS (13)
  - Seizure [Recovering/Resolving]
  - Epilepsy [Unknown]
  - Coma [Recovered/Resolved]
  - Malaise [Not Recovered/Not Resolved]
  - Confusional state [Unknown]
  - Lethargy [Unknown]
  - Crying [Recovering/Resolving]
  - Emotional distress [Recovering/Resolving]
  - Dysarthria [Recovering/Resolving]
  - Amnesia [Recovering/Resolving]
  - Fatigue [Recovering/Resolving]
  - Pruritus [Recovered/Resolved]
  - Product dose omission issue [Unknown]

NARRATIVE: CASE EVENT DATE: 20230501
